FAERS Safety Report 21989780 (Version 2)
Quarter: 2023Q1

REPORT INFORMATION
  Report Type: Spontaneous
  Country: AU (occurrence: AU)
  Receive Date: 20230214
  Receipt Date: 20230216
  Transmission Date: 20230418
  Serious: Yes (Death)
  Sender: FDA-Public Use
  Company Number: AU-JNJFOC-20230217999

PATIENT
  Age: 74 Year
  Sex: Male

DRUGS (4)
  1. FLUCONAZOLE [Suspect]
     Active Substance: FLUCONAZOLE
     Indication: Candida infection
     Dosage: UNK
     Route: 065
  2. MICAFUNGIN [Suspect]
     Active Substance: MICAFUNGIN
     Indication: Candida infection
     Dosage: UNK
     Route: 065
  3. AZACITIDINE [Concomitant]
     Active Substance: AZACITIDINE
     Indication: Myeloproliferative neoplasm
     Dosage: 75 MILLIGRAM/SQUARE METRE FOR FOR SEVEN DAYS OUT OF A 28DAYS CYCLE
     Route: 058
     Dates: start: 2018
  4. AZACITIDINE [Concomitant]
     Active Substance: AZACITIDINE
     Indication: Myelodysplastic syndrome
     Dosage: UNK
     Route: 065

REACTIONS (1)
  - Drug ineffective [Fatal]
